FAERS Safety Report 14921364 (Version 1)
Quarter: 2018Q2

REPORT INFORMATION
  Report Type: Report from Study
  Country: None (occurrence: US)
  Receive Date: 20180522
  Receipt Date: 20180522
  Transmission Date: 20180711
  Serious: Yes (Other)
  Sender: FDA-Public Use
  Company Number: US-ABBVIE-17K-163-2120308-00

PATIENT
  Age: 60 Year
  Sex: Male

DRUGS (1)
  1. HUMIRA [Suspect]
     Active Substance: ADALIMUMAB
     Indication: RHEUMATOID ARTHRITIS
     Route: 058
     Dates: start: 20170505

REACTIONS (9)
  - Infection [Unknown]
  - Foot deformity [Unknown]
  - Rheumatoid arthritis [Not Recovered/Not Resolved]
  - Pain in extremity [Unknown]
  - Spinal fracture [Recovered/Resolved]
  - Osteoporosis [Not Recovered/Not Resolved]
  - Ankle deformity [Unknown]
  - Elbow deformity [Unknown]
  - Fall [Unknown]

NARRATIVE: CASE EVENT DATE: 2017
